FAERS Safety Report 15641332 (Version 1)
Quarter: 2018Q4

REPORT INFORMATION
  Report Type: Spontaneous
  Country: US (occurrence: US)
  Receive Date: 20181120
  Receipt Date: 20181120
  Transmission Date: 20190205
  Serious: Yes (Death)
  Sender: FDA-Public Use
  Company Number: PHEH2018US049239

PATIENT
  Sex: Male

DRUGS (2)
  1. TAFINLAR [Suspect]
     Active Substance: DABRAFENIB MESYLATE
     Indication: ILL-DEFINED DISORDER
     Dosage: 150 MG, QD
     Route: 048
     Dates: start: 20180228
  2. MEKINIST [Suspect]
     Active Substance: TRAMETINIB DIMETHYL SULFOXIDE
     Indication: ILL-DEFINED DISORDER
     Dosage: 2 MG, QD
     Route: 048
     Dates: start: 20180228

REACTIONS (1)
  - Death [Fatal]
